FAERS Safety Report 25056386 (Version 3)
Quarter: 2025Q3

REPORT INFORMATION
  Report Type: Spontaneous
  Country: EU (occurrence: EU)
  Receive Date: 20250310
  Receipt Date: 20250802
  Transmission Date: 20251021
  Serious: Yes (Other)
  Sender: ALEXION PHARMACEUTICALS
  Company Number: EU-AstraZeneca-CH-00819878AMP

PATIENT
  Sex: Female

DRUGS (1)
  1. RILAST [Suspect]
     Active Substance: BUDESONIDE\FORMOTEROL

REACTIONS (5)
  - Choking [Unknown]
  - Device malfunction [Unknown]
  - Nervousness [Unknown]
  - Product dose omission issue [Unknown]
  - Product use issue [Unknown]
